FAERS Safety Report 6444564-5 (Version None)
Quarter: 2009Q4

REPORT INFORMATION
  Report Type: 
  Country: None (occurrence: None)
  Receive Date: 20091118
  Receipt Date: 20090903
  Transmission Date: 20100525
  Serious: No
  Sender: FDA-Public Use
  Company Number: A0805794A

PATIENT
  Age: 72 Year
  Sex: Female

DRUGS (9)
  1. COREG CR [Suspect]
     Dosage: 20MG PER DAY
     Route: 048
     Dates: start: 20090824
  2. ZANTAC [Concomitant]
  3. ZETIA [Concomitant]
  4. GABAPENTIN [Concomitant]
  5. PRAVASTATIN [Concomitant]
  6. EXFORGE [Concomitant]
  7. PREVACID [Concomitant]
  8. PLAVIX [Concomitant]
  9. POTASSIUM CHLORIDE [Concomitant]

REACTIONS (6)
  - BALANCE DISORDER [None]
  - DIARRHOEA [None]
  - DIZZINESS [None]
  - SOMNOLENCE [None]
  - VISION BLURRED [None]
  - VOMITING [None]
